FAERS Safety Report 8991402 (Version 1)
Quarter: 2012Q4

REPORT INFORMATION
  Report Type: 
  Country: US (occurrence: US)
  Receive Date: 20121229
  Receipt Date: 20121229
  Transmission Date: 20130627
  Serious: No
  Sender: FDA-Public Use
  Company Number: US-009507513-1212USA010759

PATIENT
  Sex: Male

DRUGS (5)
  1. PEG-INTRON [Suspect]
     Indication: HEPATITIS C
     Dosage: 120 Microgram, qw
     Route: 058
     Dates: start: 201207
  2. RIBAVIRIN [Suspect]
     Indication: HEPATITIS C
     Dosage: 200 mg
     Dates: start: 201207
  3. VICTRELIS [Suspect]
     Indication: HEPATITIS C
     Dosage: 200 mg
     Dates: start: 2012
  4. LOSARTAN POTASSIUM [Concomitant]
     Dosage: 100 mg
  5. METOPROLOL [Concomitant]
     Dosage: 100 mg ER

REACTIONS (1)
  - Anaemia [Unknown]
